FAERS Safety Report 9173436 (Version 1)
Quarter: 2013Q1

REPORT INFORMATION
  Report Type: Spontaneous
  Country: IN (occurrence: None)
  Receive Date: 20130313
  Receipt Date: 20130313
  Transmission Date: 20140127
  Serious: Yes (Other)
  Sender: FDA-Public Use
  Company Number: AUR-APL-2013-02172

PATIENT
  Age: 56 Year
  Sex: Female

DRUGS (6)
  1. AMISULPRIDE [Suspect]
     Indication: ANXIETY
  2. AMISULPRIDE [Suspect]
     Indication: DEPRESSION
  3. ESCITALOPRAM (ESCITALOPRAM) [Suspect]
     Indication: ANXIETY
  4. ESCITALOPRAM (ESCITALOPRAM) [Suspect]
     Indication: DEPRESSION
  5. FLUVOXAMINE [Suspect]
     Indication: ANXIETY
  6. FLUVOXAMINE [Suspect]
     Indication: DEPRESSION

REACTIONS (4)
  - Gastritis [None]
  - Tardive dyskinesia [None]
  - Depression [None]
  - Condition aggravated [None]
